FAERS Safety Report 5330222-7 (Version None)
Quarter: 2007Q2

REPORT INFORMATION
  Report Type: 
  Country: None (occurrence: None)
  Receive Date: 20070521
  Receipt Date: 20070508
  Transmission Date: 20071010
  Serious: Yes (Other)
  Sender: FDA-Public Use
  Company Number: GR-ELI_LILLY_AND_COMPANY-GR200705001927

PATIENT
  Age: 71 Year
  Sex: Male
  Weight: 70 kg

DRUGS (6)
  1. CYMBALTA [Suspect]
     Indication: DEPRESSION
     Dosage: 60 MG, DAILY (1/D)
     Route: 048
     Dates: start: 20070202
  2. REMERON [Concomitant]
     Indication: DEPRESSION
     Dosage: 45 MG, DAILY (1/D)
     Route: 048
  3. LOPRESSOR [Concomitant]
     Indication: CARDIAC FAILURE
     Dosage: 100 MG, DAILY (1/D)
     Route: 048
  4. SALOSPIR-A [Concomitant]
     Indication: CARDIAC FAILURE
     Dosage: 100 MG, DAILY (1/D)
     Route: 048
  5. DIAMICRON [Concomitant]
     Indication: DIABETES MELLITUS
     Dosage: UNK UNK, DAILY (1/D)
     Route: 048
  6. MADOPAR [Concomitant]
     Dosage: 250 MG, DAILY (1/D)
     Route: 048

REACTIONS (1)
  - BLOOD PRESSURE INCREASED [None]
